FAERS Safety Report 9455775 (Version 1)
Quarter: 2013Q3

REPORT INFORMATION
  Report Type: Spontaneous
  Country: US (occurrence: US)
  Receive Date: 20130813
  Receipt Date: 20130813
  Transmission Date: 20140515
  Serious: Yes (Other)
  Sender: FDA-Public Use
  Company Number: US-BAYER-2013-097495

PATIENT
  Age: 69 Year
  Sex: Female
  Weight: 56.69 kg

DRUGS (1)
  1. BAYER GENUINE ASPIRIN ORIGINAL STRENGTH [Suspect]
     Dosage: UNK UNK, PRN
     Route: 048

REACTIONS (2)
  - Throat tightness [Recovered/Resolved]
  - Drug hypersensitivity [Not Recovered/Not Resolved]
